FAERS Safety Report 5576156-4 (Version None)
Quarter: 2007Q4

REPORT INFORMATION
  Report Type: 
  Country: None (occurrence: None)
  Receive Date: 20071228
  Receipt Date: 20071219
  Transmission Date: 20080405
  Serious: Yes (Hospitalization)
  Sender: FDA-Public Use
  Company Number: US-JNJFOC-20071204995

PATIENT
  Age: 81 Year
  Sex: Female
  Weight: 43.2 kg

DRUGS (13)
  1. DOXORUBICIN HCL [Suspect]
     Indication: B-CELL LYMPHOMA
     Dosage: CYCLE 4, 30MG/M2 ON DAY 1.
     Route: 042
  2. RITUXIMAB [Suspect]
     Indication: B-CELL LYMPHOMA
     Dosage: CYCLE 4, 375MG/M2, DAY 1.
     Route: 065
  3. CYCLOPHOSPHAMIDE [Suspect]
     Indication: B-CELL LYMPHOMA
     Dosage: CYCLE 4, 450MG/M2, DAY 1.
     Route: 065
  4. VINCRISTINE [Suspect]
     Indication: B-CELL LYMPHOMA
     Dosage: CYCLE 4, ON DAY 1.
     Route: 065
  5. NEULASTA [Suspect]
     Indication: B-CELL LYMPHOMA
     Dosage: 1 DOSE 24 HOURS AFTER CHEMOTHERAPY COMPLETED
     Route: 058
  6. PREDNISONE [Suspect]
     Indication: B-CELL LYMPHOMA
     Dosage: CYCLE 4, 40MG/M2, DAYS 1-5.
     Route: 048
  7. LACTULOSE [Concomitant]
     Route: 065
  8. LEVOTHROID [Concomitant]
     Route: 065
  9. LOVENOX [Concomitant]
     Route: 065
  10. COZAAR [Concomitant]
     Route: 065
  11. DARVON [Concomitant]
     Route: 065
  12. PEPCID [Concomitant]
     Route: 065
  13. REGLAN [Concomitant]
     Route: 065

REACTIONS (9)
  - ARTHRALGIA [None]
  - CONFUSIONAL STATE [None]
  - CONVULSION [None]
  - FATIGUE [None]
  - HYPERTENSION [None]
  - PYREXIA [None]
  - TREMOR [None]
  - URETERIC OBSTRUCTION [None]
  - VAGINAL INFECTION [None]
